FAERS Safety Report 21045854 (Version 1)
Quarter: 2022Q3

REPORT INFORMATION
  Report Type: Other
  Country: JP (occurrence: JP)
  Receive Date: 20220706
  Receipt Date: 20220706
  Transmission Date: 20221027
  Serious: Yes (Hospitalization, Other)
  Sender: FDA-Public Use
  Company Number: JP-DENTSPLY-2022SCDP000174

PATIENT
  Age: 79 Year
  Sex: Female

DRUGS (10)
  1. LIDOCAINE [Suspect]
     Active Substance: LIDOCAINE
     Indication: Local anaesthesia
     Dosage: 7 MILLILITER TOTAL 0.5 % LIDOCAINE INJECTION
     Route: 058
  2. LIDOCAINE [Suspect]
     Active Substance: LIDOCAINE
     Dosage: 10 MILLILITER TOTAL 0.5 % LIDOCAINE INJECTION (INJECTED INTO THE CHEST SKIN INCISION SITE)
     Route: 058
  3. BUPIVACAINE [Suspect]
     Active Substance: BUPIVACAINE
     Indication: Postoperative analgesia
     Dosage: 10 MILLILITER TOTAL 0.75 % BUPIVACAINE INJECTION
     Route: 058
  4. ROCURONIUM [Concomitant]
     Active Substance: ROCURONIUM BROMIDE
     Indication: General anaesthesia
     Dosage: 35 MILLIGRAM TOTAL
  5. SUGAMMADEX [Concomitant]
     Active Substance: SUGAMMADEX
     Indication: Anaesthesia reversal
     Dosage: UNK
  6. EPINEPHRINE [Concomitant]
     Active Substance: EPINEPHRINE
     Indication: Local anaesthesia
     Dosage: UNK INJECTION (INJECTED INTO THE CHEST SKIN INCISION SITE)
     Route: 058
  7. DESFLURANE [Concomitant]
     Active Substance: DESFLURANE
     Indication: Maintenance of anaesthesia
     Dosage: 5 % DESFLURANE INFUSION
  8. PROPOFOL [Concomitant]
     Active Substance: PROPOFOL
     Indication: General anaesthesia
     Dosage: 60 MILLIGRAM TOTAL
  9. REMIFENTANIL [Concomitant]
     Active Substance: REMIFENTANIL
     Indication: General anaesthesia
     Dosage: 0.7 MILLIGRAM PER 1 HOUR REMIFENTANIL
  10. REMIFENTANIL [Concomitant]
     Active Substance: REMIFENTANIL
     Indication: Maintenance of anaesthesia
     Dosage: 0.6 MILLIGRAM PER 1 HOUR OF REMIFENTANIL INFUSION

REACTIONS (1)
  - Brain stem syndrome [Recovered/Resolved]
